FAERS Safety Report 9920185 (Version 1)
Quarter: 2014Q1

REPORT INFORMATION
  Report Type: Spontaneous
  Country: US (occurrence: US)
  Receive Date: 20140224
  Receipt Date: 20140224
  Transmission Date: 20141002
  Serious: No
  Sender: FDA-Public Use
  Company Number: US-BAXTER-2013BAX012050

PATIENT
  Sex: Male

DRUGS (2)
  1. FEIBA NF [Suspect]
     Indication: FACTOR VIII INHIBITION
  2. NOVO SEVEN [Suspect]
     Indication: FACTOR VIII INHIBITION

REACTIONS (1)
  - Headache [Unknown]
